FAERS Safety Report 9619262 (Version 2)
Quarter: 2014Q1

REPORT INFORMATION
  Report Type: Spontaneous
  Country: US (occurrence: US)
  Receive Date: 20131014
  Receipt Date: 20140113
  Transmission Date: 20141002
  Serious: Yes (Hospitalization, Other)
  Sender: FDA-Public Use
  Company Number: US-PFIZER INC-2013289652

PATIENT
  Age: 77 Year
  Sex: Female

DRUGS (1)
  1. INLYTA [Suspect]
     Indication: RENAL CANCER
     Dosage: 5 MG, 2X/DAY (BID)
     Dates: start: 201209

REACTIONS (3)
  - Urinary tract infection [Recovered/Resolved]
  - Pneumonia [Unknown]
  - Asthenia [Recovered/Resolved]
